FAERS Safety Report 5537759-6 (Version None)
Quarter: 2007Q4

REPORT INFORMATION
  Report Type: 
  Country: None (occurrence: None)
  Receive Date: 20071207
  Receipt Date: 20071126
  Transmission Date: 20080405
  Serious: Yes (Hospitalization, Other)
  Sender: FDA-Public Use
  Company Number: CA-PFIZER INC-2004114443

PATIENT
  Sex: Female
  Weight: 66.5 kg

DRUGS (9)
  1. DILANTIN [Suspect]
     Indication: EPILEPSY
     Route: 048
  2. PRIMIDONE [Suspect]
     Indication: DRUG USE FOR UNKNOWN INDICATION
  3. VALPROIC ACID [Suspect]
     Indication: CONVULSION
  4. LAMICTAL [Suspect]
     Indication: CONVULSION
  5. CLOBAZAM [Suspect]
     Indication: DRUG USE FOR UNKNOWN INDICATION
     Route: 048
  6. DEPAKENE [Suspect]
     Indication: DRUG USE FOR UNKNOWN INDICATION
     Route: 048
  7. VITAMINS [Concomitant]
     Route: 048
  8. CALCIUM [Concomitant]
     Route: 048
  9. FRISIUM [Concomitant]

REACTIONS (37)
  - ALOPECIA [None]
  - ANTICONVULSANT DRUG LEVEL INCREASED [None]
  - ASTHMA [None]
  - BLOOD ALKALINE PHOSPHATASE ABNORMAL [None]
  - BLOOD CHOLESTEROL INCREASED [None]
  - BLOOD COUNT ABNORMAL [None]
  - BLOOD GLUCOSE INCREASED [None]
  - CENTRAL NERVOUS SYSTEM LESION [None]
  - CEREBROSCLEROSIS [None]
  - CHOLELITHIASIS [None]
  - CONVULSION [None]
  - DRUG INEFFECTIVE [None]
  - EPILEPSY [None]
  - FEELING ABNORMAL [None]
  - GAIT DISTURBANCE [None]
  - GASTRIC CANCER [None]
  - GASTRIC DISORDER [None]
  - GINGIVAL BLEEDING [None]
  - GINGIVAL HYPERPLASIA [None]
  - HEPATIC ENZYME INCREASED [None]
  - HEPATIC MASS [None]
  - HEPATOMEGALY [None]
  - HERNIA [None]
  - HYPOAESTHESIA [None]
  - HYPOREFLEXIA [None]
  - LYMPHADENOPATHY [None]
  - LYMPHOID TISSUE HYPERPLASIA [None]
  - LYMPHOMA [None]
  - OSTEOPENIA [None]
  - OSTEOPOROSIS [None]
  - OVARIAN CYST [None]
  - PALPITATIONS [None]
  - PSEUDOLYMPHOMA [None]
  - SOMNOLENCE [None]
  - SPLENOMEGALY [None]
  - UTERINE LEIOMYOMA [None]
  - WEIGHT INCREASED [None]
